FAERS Safety Report 20035959 (Version 2)
Quarter: 2021Q4

REPORT INFORMATION
  Report Type: Spontaneous
  Country: JP (occurrence: JP)
  Receive Date: 20211105
  Receipt Date: 20211115
  Transmission Date: 20220303
  Serious: Yes (Life-Threatening, Hospitalization, Other)
  Sender: FDA-Public Use
  Company Number: JP-KYOWAKIRIN-2021AKK009536

PATIENT
  Age: 72 Year
  Sex: Female

DRUGS (8)
  1. PEGFILGRASTIM [Suspect]
     Active Substance: PEGFILGRASTIM
     Indication: Febrile neutropenia
     Dosage: 3.6 MG
     Route: 058
     Dates: start: 20210402, end: 20210402
  2. PEGFILGRASTIM [Suspect]
     Active Substance: PEGFILGRASTIM
     Dosage: 3.6 MG
     Route: 058
     Dates: start: 20210521, end: 20210521
  3. DOCETAXEL [Suspect]
     Active Substance: DOCETAXEL
     Indication: Uterine cancer
     Dosage: 70 MG/M2
     Route: 041
     Dates: start: 2013
  4. DOCETAXEL [Suspect]
     Active Substance: DOCETAXEL
     Dosage: 70 MG/M2
     Route: 041
     Dates: start: 20210331, end: 20210331
  5. DOCETAXEL [Suspect]
     Active Substance: DOCETAXEL
     Dosage: 70 MG/M2
     Route: 041
     Dates: start: 20210519, end: 20210519
  6. CARBOPLATIN [Suspect]
     Active Substance: CARBOPLATIN
     Indication: Uterine cancer
     Dosage: UNK
     Route: 041
     Dates: start: 2013
  7. CARBOPLATIN [Suspect]
     Active Substance: CARBOPLATIN
     Dosage: UNK
     Route: 041
     Dates: start: 20210331, end: 20210331
  8. CARBOPLATIN [Suspect]
     Active Substance: CARBOPLATIN
     Dosage: UNK
     Route: 041
     Dates: start: 20210519, end: 20210519

REACTIONS (4)
  - Myelodysplastic syndrome [Unknown]
  - C-reactive protein increased [Recovered/Resolved]
  - Pyrexia [Recovering/Resolving]
  - Pyrexia [Recovered/Resolved]

NARRATIVE: CASE EVENT DATE: 20210404
